FAERS Safety Report 9971367 (Version 2)
Quarter: 2014Q1

REPORT INFORMATION
  Report Type: Report from Study
  Country: US (occurrence: US)
  Receive Date: 20140306
  Receipt Date: 20140306
  Transmission Date: 20141002
  Serious: No
  Sender: FDA-Public Use
  Company Number: US-ABBVIE-13P-163-1077355-00

PATIENT
  Age: 59 Year
  Sex: Male

DRUGS (9)
  1. HUMIRA [Suspect]
     Indication: COLITIS ULCERATIVE
     Dates: start: 20130301, end: 20130705
  2. ASACOL [Concomitant]
     Indication: COLITIS ULCERATIVE
  3. OXYCODONE [Concomitant]
     Indication: PAIN
     Dosage: EVERY 6 TO 8 HOURS
  4. AMBIEN [Concomitant]
     Indication: INSOMNIA
     Dosage: AT HOUR OF SLEEP
  5. AMBIEN [Concomitant]
     Dosage: AT HOUR OF SLEEP
  6. GABAPENTIN [Concomitant]
     Indication: BIPOLAR DISORDER
  7. MULTIVITAMIN [Concomitant]
     Indication: PRODUCT USED FOR UNKNOWN INDICATION
  8. PREDNISONE [Concomitant]
     Indication: PRODUCT USED FOR UNKNOWN INDICATION
  9. NEURONTIN [Concomitant]
     Indication: NEUROPATHY PERIPHERAL

REACTIONS (8)
  - Skin fissures [Not Recovered/Not Resolved]
  - Furuncle [Not Recovered/Not Resolved]
  - Injection site pain [Not Recovered/Not Resolved]
  - Flatulence [Not Recovered/Not Resolved]
  - Onychomycosis [Not Recovered/Not Resolved]
  - Onychomycosis [Not Recovered/Not Resolved]
  - Impaired healing [Not Recovered/Not Resolved]
  - Formication [Not Recovered/Not Resolved]
